FAERS Safety Report 4747967-X (Version None)
Quarter: 2005Q3

REPORT INFORMATION
  Report Type: 
  Country: None (occurrence: None)
  Receive Date: 20050816
  Receipt Date: 20050726
  Transmission Date: 20060218
  Serious: Yes (Death, Life-Threatening)
  Sender: FDA-Public Use
  Company Number: ATO-05-0257

PATIENT
  Age: 33 Year
  Sex: Female

DRUGS (5)
  1. TRISENOX [Suspect]
     Indication: ACUTE PROMYELOCYTIC LEUKAEMIA
     Dosage: 9 MG (9 MG), IVI
     Route: 042
     Dates: start: 20050627, end: 20050701
  2. TRISENOX [Suspect]
     Indication: ACUTE PROMYELOCYTIC LEUKAEMIA
     Dosage: 9 MG (9 MG), IVI
     Route: 042
     Dates: start: 20050714, end: 20050714
  3. MEROPENEM [Concomitant]
  4. AMIKACIN [Concomitant]
  5. LEVOFLOXACIN [Concomitant]

REACTIONS (4)
  - CEREBRAL HAEMORRHAGE [None]
  - DISSEMINATED INTRAVASCULAR COAGULATION [None]
  - LEUKOCYTOSIS [None]
  - NYSTAGMUS [None]
